FAERS Safety Report 6768809-7 (Version None)
Quarter: 2010Q2

REPORT INFORMATION
  Report Type: 
  Country: None (occurrence: None)
  Receive Date: 20100611
  Receipt Date: 20100606
  Transmission Date: 20101027
  Serious: Yes (Other)
  Sender: FDA-Public Use
  Company Number: 2009S1007588

PATIENT
  Age: 62 Year
  Sex: Female

DRUGS (3)
  1. PHOSPHOSODA FLAVOR NOT SPECIFIED [Suspect]
     Indication: COLONOSCOPY
     Dosage: 90 ML;TOTAL; PO
     Route: 048
     Dates: start: 20080429, end: 20080429
  2. QUINAPRIL [Concomitant]
  3. SPIRONOLACTONE [Concomitant]

REACTIONS (2)
  - NEPHROPATHY [None]
  - RENAL IMPAIRMENT [None]
